FAERS Safety Report 13430236 (Version 1)
Quarter: 2017Q2

REPORT INFORMATION
  Report Type: Spontaneous
  Country: GB (occurrence: GB)
  Receive Date: 20170412
  Receipt Date: 20170412
  Transmission Date: 20170830
  Serious: Yes (Life-Threatening, Other)
  Sender: FDA-Public Use
  Company Number: GB-SUN PHARMACEUTICAL INDUSTRIES LTD-2017R1-137789

PATIENT
  Age: 24 Month
  Sex: Male

DRUGS (1)
  1. VALPROIC ACID. [Suspect]
     Active Substance: VALPROIC ACID
     Indication: INFANTILE SPASMS
     Dosage: UNK
     Route: 065

REACTIONS (2)
  - Acidosis hyperchloraemic [Unknown]
  - Fanconi syndrome [Unknown]
